FAERS Safety Report 8251257-0 (Version None)
Quarter: 2012Q1

REPORT INFORMATION
  Report Type: 
  Country: None (occurrence: None)
  Receive Date: 20120321
  Receipt Date: 20100610
  Transmission Date: 20120608
  Serious: No
  Sender: FDA-Public Use
  Company Number: PHHY2010US38253

PATIENT
  Sex: Female

DRUGS (5)
  1. ZYRTEC [Concomitant]
  2. PAXIL [Concomitant]
  3. IBUPROFEN [Concomitant]
  4. ILARIS [Suspect]
     Dosage: 150 MG, ONLY 1 INJECTION, SUBCUTANEOUS
     Route: 058
     Dates: start: 20100414
  5. CONTRACEPTIVES NOS (NO INGREDIENTS/SUBSTANCES) [Concomitant]

REACTIONS (5)
  - FEELING HOT [None]
  - HYPERAESTHESIA [None]
  - OEDEMA PERIPHERAL [None]
  - ERYTHEMA [None]
  - SENSATION OF HEAVINESS [None]
